FAERS Safety Report 21595237 (Version 1)
Quarter: 2022Q4

REPORT INFORMATION
  Report Type: Report from Study
  Country: US (occurrence: US)
  Receive Date: 20221115
  Receipt Date: 20221115
  Transmission Date: 20230112
  Serious: No
  Sender: FDA-Public Use
  Company Number: US-ABBVIE-22K-163-4510341-00

PATIENT
  Sex: Male

DRUGS (2)
  1. IMBRUVICA [Suspect]
     Active Substance: IBRUTINIB
     Indication: Chronic lymphocytic leukaemia
     Dosage: FORM STRENGTH: 420 MILLIGRAM
     Route: 048
     Dates: start: 20211004
  2. IMBRUVICA [Suspect]
     Active Substance: IBRUTINIB
     Indication: Chronic lymphocytic leukaemia
     Dosage: 420 MILLIGRAM
     Route: 048

REACTIONS (11)
  - Skin exfoliation [Unknown]
  - Impaired healing [Unknown]
  - Skin disorder [Unknown]
  - Thermal burn [Unknown]
  - Nail disorder [Unknown]
  - Eczema [Unknown]
  - White blood cell count abnormal [Unknown]
  - Onychalgia [Unknown]
  - Contusion [Unknown]
  - Pain [Unknown]
  - Haemorrhage [Unknown]
